FAERS Safety Report 21147160 (Version 1)
Quarter: 2022Q3

REPORT INFORMATION
  Report Type: Spontaneous
  Country: US (occurrence: None)
  Receive Date: 20220728
  Receipt Date: 20220728
  Transmission Date: 20221027
  Serious: No
  Sender: FDA-Public Use
  Company Number: None

PATIENT
  Sex: Female

DRUGS (1)
  1. CAPECITABINE [Suspect]
     Active Substance: CAPECITABINE
     Indication: Oesophageal carcinoma
     Dosage: DIRECTIONS: TAKE 2 TABLETS BY MOUTH 2 TIMES A DAY ON DAYS 1-14 OF EACH 21-DAY CYCLE
     Route: 048
     Dates: start: 202110

REACTIONS (1)
  - Thrombosis [None]
